FAERS Safety Report 10602281 (Version 1)
Quarter: 2014Q4

REPORT INFORMATION
  Report Type: Spontaneous
  Country: CA (occurrence: CA)
  Receive Date: 20141124
  Receipt Date: 20141124
  Transmission Date: 20150529
  Serious: Yes (Disabling)
  Sender: FDA-Public Use
  Company Number: CA-HORIZON-VIM-0113-2014

PATIENT
  Age: 67 Year
  Sex: Female
  Weight: 68.9 kg

DRUGS (4)
  1. DEPO-MEDROL [Concomitant]
     Active Substance: METHYLPREDNISOLONE ACETATE
     Route: 014
  2. TYLENOL EXTRA STRENGTH GZ [Concomitant]
  3. ELTROXIN [Concomitant]
     Active Substance: LEVOTHYROXINE
  4. VIMOVO [Suspect]
     Active Substance: ESOMEPRAZOLE MAGNESIUM\NAPROXEN
     Route: 048

REACTIONS (2)
  - Blindness unilateral [Not Recovered/Not Resolved]
  - Arterial occlusive disease [Not Recovered/Not Resolved]
